FAERS Safety Report 6710528-7 (Version None)
Quarter: 2010Q2

REPORT INFORMATION
  Report Type: 
  Country: None (occurrence: None)
  Receive Date: 20100504
  Receipt Date: 20100420
  Transmission Date: 20101027
  Serious: Yes (Other)
  Sender: FDA-Public Use
  Company Number: PHHY2010CH24819

PATIENT
  Age: 69 Year
  Sex: Male

DRUGS (5)
  1. AFINITOR [Suspect]
     Indication: RENAL CELL CARCINOMA
     Dosage: 10 MG/DAY
     Route: 048
     Dates: start: 20090703
  2. DIPYRONE TAB [Concomitant]
     Indication: TUMOUR PAIN
     Dosage: UNK
  3. MS CONTIN [Concomitant]
     Indication: TUMOUR PAIN
     Dosage: 20 MG/D OCCASIONAL ADMISTERED
  4. OMEPRAZOLE [Concomitant]
     Dosage: UNK
  5. ZOMETA [Concomitant]
     Indication: METASTASES TO BONE
     Dosage: 4 MG EVERY THREE MONTHS
     Route: 042

REACTIONS (8)
  - ASTHENIA [None]
  - CEREBRAL ATROPHY [None]
  - CONFUSIONAL STATE [None]
  - DISTURBANCE IN ATTENTION [None]
  - FATIGUE [None]
  - MALIGNANT NEOPLASM PROGRESSION [None]
  - MEMORY IMPAIRMENT [None]
  - MENTAL STATUS CHANGES [None]
